FAERS Safety Report 8485701-0 (Version None)
Quarter: 2012Q3

REPORT INFORMATION
  Report Type: 
  Country: None (occurrence: None)
  Receive Date: 20120703
  Receipt Date: 20120629
  Transmission Date: 20120928
  Serious: No
  Sender: FDA-Public Use
  Company Number: US-PFIZER INC-2012157059

PATIENT
  Sex: Male
  Weight: 90.703 kg

DRUGS (5)
  1. PLAVIX [Concomitant]
     Indication: CORONARY ARTERY BYPASS
     Dosage: 75 MG DAILY
  2. METFORMIN [Concomitant]
     Indication: TYPE 2 DIABETES MELLITUS
     Dosage: 2000 MG, UNK
  3. GLIPIZIDE [Concomitant]
     Indication: TYPE 2 DIABETES MELLITUS
     Dosage: UNK
  4. ATORVASTATIN CALCIUM [Suspect]
     Dosage: 20 MG DAILY
     Dates: start: 20120101, end: 20120628
  5. ATENOLOL [Concomitant]
     Indication: HYPERTENSION
     Dosage: 10 MG, 2X/DAY

REACTIONS (4)
  - HYPOTENSION [None]
  - BLOOD GLUCOSE DECREASED [None]
  - PAIN [None]
  - MUSCLE SPASMS [None]
